FAERS Safety Report 5802097-0 (Version None)
Quarter: 2008Q3

REPORT INFORMATION
  Report Type: 
  Country: None (occurrence: None)
  Receive Date: 20080707
  Receipt Date: 20080630
  Transmission Date: 20090109
  Serious: Yes (Life-Threatening, Hospitalization, Other)
  Sender: FDA-Public Use
  Company Number: PHHY2008BR09351

PATIENT
  Sex: Male
  Weight: 82 kg

DRUGS (2)
  1. LEPONEX [Suspect]
     Indication: SCHIZOPHRENIA
     Dosage: 100 MG, BID
     Route: 048
     Dates: start: 20080507, end: 20080627
  2. LEPONEX [Suspect]
     Dosage: 1 TABLET IN THE MORNING AND 1 AT NIGHT

REACTIONS (10)
  - BLOOD PRESSURE INCREASED [None]
  - LISTLESS [None]
  - NASOPHARYNGITIS [None]
  - PALLOR [None]
  - PYREXIA [None]
  - SCRATCH [None]
  - SKIN DISCOLOURATION [None]
  - TACHYCARDIA [None]
  - WHITE BLOOD CELL COUNT DECREASED [None]
  - WOUND [None]
